FAERS Safety Report 7647056-0 (Version None)
Quarter: 2011Q3

REPORT INFORMATION
  Report Type: 
  Country: None (occurrence: None)
  Receive Date: 20110801
  Receipt Date: 20110730
  Transmission Date: 20111222
  Serious: Yes (Death, Other)
  Sender: FDA-Public Use
  Company Number: US-PFIZER INC-2011173685

PATIENT
  Sex: Male

DRUGS (1)
  1. CHANTIX [Suspect]
     Indication: SMOKING CESSATION THERAPY
     Dosage: UNK
     Route: 048
     Dates: start: 20101101, end: 20110101

REACTIONS (6)
  - RESPIRATORY ARREST [None]
  - SKIN EXFOLIATION [None]
  - DRUG INEFFECTIVE [None]
  - HAEMATOMA [None]
  - PNEUMONIA [None]
  - CARDIAC FAILURE [None]
